FAERS Safety Report 18207859 (Version 3)
Quarter: 2020Q3

REPORT INFORMATION
  Report Type: Spontaneous
  Country: US (occurrence: US)
  Receive Date: 20200828
  Receipt Date: 20200929
  Transmission Date: 20201103
  Serious: No
  Sender: FDA-Public Use
  Company Number: US-PFIZER INC-2020332346

PATIENT
  Age: 43 Year
  Sex: Male
  Weight: 81.65 kg

DRUGS (8)
  1. SERTRALINE HCL [Suspect]
     Active Substance: SERTRALINE HYDROCHLORIDE
     Indication: DEPRESSION
  2. SERTRALINE HCL [Suspect]
     Active Substance: SERTRALINE HYDROCHLORIDE
     Indication: GENERALISED ANXIETY DISORDER
     Dosage: 150 MG, DAILY
     Route: 048
     Dates: end: 202002
  3. GABAPENTIN. [Concomitant]
     Active Substance: GABAPENTIN
     Indication: SLEEP DISORDER
     Dosage: 100 MG IN MORNING
     Dates: start: 2002
  4. GABAPENTIN. [Concomitant]
     Active Substance: GABAPENTIN
     Indication: OBSESSIVE-COMPULSIVE DISORDER
  5. GABAPENTIN. [Concomitant]
     Active Substance: GABAPENTIN
     Indication: SLEEP DISORDER
     Dosage: 800 MG AT HOUR OF SLEEP
     Dates: start: 2002
  6. GABAPENTIN. [Concomitant]
     Active Substance: GABAPENTIN
     Indication: OBSESSIVE-COMPULSIVE DISORDER
  7. GABAPENTIN. [Concomitant]
     Active Substance: GABAPENTIN
     Indication: TACHYPHRENIA
  8. GABAPENTIN. [Concomitant]
     Active Substance: GABAPENTIN
     Indication: TACHYPHRENIA

REACTIONS (3)
  - Drug ineffective [Unknown]
  - Malabsorption [Unknown]
  - Withdrawal syndrome [Recovered/Resolved]
